FAERS Safety Report 8295088 (Version 5)
Quarter: 2012Q4

REPORT INFORMATION
  Report Type: 
  Country: US (occurrence: US)
  Receive Date: 20111216
  Receipt Date: 20121023
  Transmission Date: 20130627
  Serious: Yes (Hospitalization, Disabling, Other)
  Sender: FDA-Public Use
  Company Number: US-009507513-1112USA01783

PATIENT

DRUGS (9)
  1. FOSAMAX [Suspect]
     Indication: OSTEOPOROSIS
     Dosage: 70 mg, QW
     Route: 048
     Dates: start: 19980303, end: 201003
  2. FOSAMAX [Suspect]
     Dosage: 40 mg, BIW
     Route: 048
     Dates: start: 20000829, end: 20001221
  3. FOSAMAX [Suspect]
     Route: 048
     Dates: start: 199803, end: 201003
  4. BONIVA [Suspect]
     Indication: OSTEOPOROSIS
     Dosage: UNK
     Route: 048
     Dates: start: 2007
  5. IBANDRONATE SODIUM [Suspect]
     Dates: start: 199803, end: 201003
  6. ACTONEL [Suspect]
     Indication: OSTEOPOROSIS
     Route: 048
     Dates: start: 19980303, end: 201003
  7. RISEDRONATE SODIUM [Suspect]
     Dates: start: 199803, end: 201003
  8. FOSAMAX D [Suspect]
     Route: 048
     Dates: start: 199803, end: 201003
  9. CYMBALTA [Concomitant]
     Indication: NEUROPATHY PERIPHERAL

REACTIONS (46)
  - Femur fracture [Unknown]
  - Stress fracture [Unknown]
  - Postoperative wound infection [Unknown]
  - Haematoma infection [Unknown]
  - Infection [Unknown]
  - Supraventricular tachycardia [Unknown]
  - Staphylococcal infection [Unknown]
  - Surgery [Unknown]
  - Hypnagogic hallucination [Recovered/Resolved]
  - Breast cyst [Unknown]
  - Spinal osteoarthritis [Unknown]
  - Cerebral atrophy [Unknown]
  - Atrial fibrillation [Unknown]
  - Leukocytosis [Unknown]
  - Carpal tunnel syndrome [Unknown]
  - Stitch abscess [Unknown]
  - Chondrocalcinosis [Unknown]
  - Bone density abnormal [Unknown]
  - Lymph node calcification [Unknown]
  - Inappropriate schedule of drug administration [Unknown]
  - Dental implantation [Unknown]
  - Carotid bruit [Unknown]
  - Renal cyst [Unknown]
  - Diverticulum intestinal [Unknown]
  - Weight decreased [Unknown]
  - Neuralgia [Unknown]
  - Macular degeneration [Unknown]
  - Vision blurred [Unknown]
  - Arteriosclerosis [Unknown]
  - Labile hypertension [Unknown]
  - Osteoarthritis [Unknown]
  - Hypoaesthesia [Unknown]
  - Palpitations [Unknown]
  - Clostridium difficile infection [Unknown]
  - Lichen planus [Recovered/Resolved]
  - Cardiac murmur [Unknown]
  - Carotid bruit [Unknown]
  - Hyperlipidaemia [Unknown]
  - Enterococcal infection [Unknown]
  - Sinus congestion [Unknown]
  - Respiratory disorder [Recovered/Resolved]
  - Depression [Unknown]
  - Anxiety [Unknown]
  - Flatulence [Unknown]
  - Oedema peripheral [Unknown]
  - Nausea [Unknown]
